FAERS Safety Report 9761239 (Version 2)
Quarter: 2014Q1

REPORT INFORMATION
  Report Type: Spontaneous
  Country: US (occurrence: US)
  Receive Date: 20131216
  Receipt Date: 20140202
  Transmission Date: 20141002
  Serious: Yes (Other)
  Sender: FDA-Public Use
  Company Number: US-BRISTOL-MYERS SQUIBB COMPANY-19894864

PATIENT
  Age: 73 Year
  Sex: Male
  Weight: 99.77 kg

DRUGS (1)
  1. BYETTA PEN DISPOSABLE [Suspect]
     Indication: TYPE 2 DIABETES MELLITUS
     Dosage: MAY13-26JUN13:5MCG?LAST DOSE:26-JUN13-02OCT13:10MCG
     Route: 058
     Dates: start: 20130524

REACTIONS (2)
  - Gallbladder disorder [Unknown]
  - Nausea [Unknown]
